FAERS Safety Report 4330690-3 (Version None)
Quarter: 2004Q2

REPORT INFORMATION
  Report Type: 
  Country: None (occurrence: None)
  Receive Date: 20040401
  Receipt Date: 20040401
  Transmission Date: 20050107
  Serious: No
  Sender: FDA-Public Use
  Company Number: None

PATIENT
  Age: 86 Year
  Sex: Male
  Weight: 63 kg

DRUGS (13)
  1. LEVOFLOXACIN [Suspect]
     Indication: PNEUMONIA
     Dosage: 250 MG PO
     Route: 048
     Dates: start: 20040112, end: 20040120
  2. CEFEPIME [Suspect]
     Indication: PNEUMONIA
     Dosage: GM IV
     Route: 042
     Dates: start: 20040105, end: 20040108
  3. CLINDAMYCIN HCL [Suspect]
     Indication: PNEUMONIA
     Dosage: 1800 MG, 600 MG Q , IV PIGGY
     Route: 042
     Dates: start: 20040104, end: 20040109
  4. SYNTHROID [Concomitant]
  5. RABEPRAZOLE NA [Concomitant]
  6. AMMONIUM LACTATE [Concomitant]
  7. CLOPIDOGREL BISULFATE [Concomitant]
  8. UNDERPAD, BED LARGE EXTRA ABSORBENT [Concomitant]
  9. DONEPEZIL HCL [Concomitant]
  10. QUETIAPINE FUMARATE [Concomitant]
  11. IMIQUIMOD 5% [Concomitant]
  12. FLUOROURACIL [Concomitant]
  13. DILTIAZEM (TIAZAC) [Concomitant]

REACTIONS (1)
  - CLOSTRIDIAL INFECTION [None]
